FAERS Safety Report 8318907-1 (Version None)
Quarter: 2012Q2

REPORT INFORMATION
  Report Type: 
  Country: None (occurrence: None)
  Receive Date: 20120427
  Receipt Date: 20120417
  Transmission Date: 20120825
  Serious: Yes (Other)
  Sender: FDA-Public Use
  Company Number: US-JNJFOC-20120302475

PATIENT
  Sex: Female
  Weight: 85.5 kg

DRUGS (4)
  1. INFLIXIMAB, RECOMBINANT [Suspect]
     Route: 042
     Dates: start: 20091101, end: 20110101
  2. INFLIXIMAB, RECOMBINANT [Suspect]
     Indication: CROHN'S DISEASE
     Route: 042
     Dates: start: 20110101
  3. VITAMIN D [Concomitant]
     Route: 048
     Dates: start: 20080101
  4. VITAMIN D [Concomitant]
     Route: 048

REACTIONS (2)
  - BREAST HYPERPLASIA [None]
  - CROHN'S DISEASE [None]
